FAERS Safety Report 8573162-2 (Version None)
Quarter: 2012Q3

REPORT INFORMATION
  Report Type: 
  Country: None (occurrence: None)
  Receive Date: 20120806
  Receipt Date: 20120723
  Transmission Date: 20120928
  Serious: Yes (Other)
  Sender: FDA-Public Use
  Company Number: US-MYLANLABS-2011S1018410

PATIENT
  Age: 44 Year
  Sex: Male

DRUGS (6)
  1. TRAMADOL HYDROCHLORIDE [Suspect]
     Indication: NEUROPATHY PERIPHERAL
     Dosage: CRUSHED AND FLOATED IN A SMALL AMOUNT OF WATER
     Route: 048
     Dates: start: 20091124
  2. GABAPENTIN [Suspect]
     Indication: NEUROPATHY PERIPHERAL
     Dosage: CRUSHED AND FLOATED IN A SMALL AMOUNT OF WATER
     Route: 048
     Dates: start: 20091027
  3. LORATADINE [Concomitant]
     Route: 048
     Dates: start: 20091030
  4. PRILOSEC [Concomitant]
     Indication: GASTROOESOPHAGEAL REFLUX DISEASE
     Dosage: TAKEN OVER 15 YEARS
  5. HYDROXYZINE [Concomitant]
     Route: 048
     Dates: start: 20091109
  6. METOPROLOL TARTRATE [Concomitant]
     Route: 048
     Dates: start: 20091222

REACTIONS (10)
  - EROSIVE OESOPHAGITIS [None]
  - CHEST PAIN [None]
  - IMPAIRED GASTRIC EMPTYING [None]
  - INSOMNIA [None]
  - OESOPHAGEAL SPASM [None]
  - OESOPHAGEAL HAEMORRHAGE [None]
  - ABDOMINAL PAIN [None]
  - VOMITING [None]
  - HAEMATOCHEZIA [None]
  - HICCUPS [None]
